FAERS Safety Report 8884730 (Version 1)
Quarter: 2012Q4

REPORT INFORMATION
  Report Type: 
  Country: US (occurrence: US)
  Receive Date: 20121102
  Receipt Date: 20121102
  Transmission Date: 20130627
  Serious: No
  Sender: FDA-Public Use
  Company Number: US-ASTRAZENECA-2012SE28139

PATIENT
  Age: 67 Year
  Sex: Female
  Weight: 50.8 kg

DRUGS (3)
  1. PRILOSEC [Suspect]
     Indication: GASTROOESOPHAGEAL REFLUX DISEASE
     Route: 048
     Dates: start: 1993
  2. PRILOSEC [Suspect]
     Indication: ULCER
     Route: 048
     Dates: start: 1993
  3. SYNTHROID [Concomitant]
     Indication: HYPOTHYROIDISM
     Route: 048

REACTIONS (2)
  - Intervertebral disc protrusion [Unknown]
  - Osteoporosis [Unknown]
